FAERS Safety Report 13142380 (Version 2)
Quarter: 2017Q2

REPORT INFORMATION
  Report Type: Report from Study
  Country: US (occurrence: US)
  Receive Date: 20170123
  Receipt Date: 20170424
  Transmission Date: 20170830
  Serious: Yes (Death)
  Sender: FDA-Public Use
  Company Number: US-EXELIXIS-CABO-17008020

PATIENT
  Age: 74 Year
  Sex: Male

DRUGS (12)
  1. CABOMETYX [Suspect]
     Active Substance: CABOZANTINIB S-MALATE
     Indication: RENAL CANCER
     Dosage: 60 MG, QD
     Route: 048
     Dates: start: 20161019
  2. LEVOTHYROXINE. [Concomitant]
     Active Substance: LEVOTHYROXINE
  3. ALLOPURINOL. [Concomitant]
     Active Substance: ALLOPURINOL
  4. MAGNESIUM [Concomitant]
     Active Substance: MAGNESIUM
  5. OMEPRAZOLE. [Concomitant]
     Active Substance: OMEPRAZOLE
  6. CABOMETYX [Suspect]
     Active Substance: CABOZANTINIB S-MALATE
     Dosage: 40 MG, QD
     Route: 048
     Dates: end: 20161220
  7. FOLIC ACID. [Concomitant]
     Active Substance: FOLIC ACID
  8. ONDANSETRON [Concomitant]
     Active Substance: ONDANSETRON
  9. MIRAPEX [Concomitant]
     Active Substance: PRAMIPEXOLE DIHYDROCHLORIDE
  10. HYDROMORPHONE [Concomitant]
     Active Substance: HYDROMORPHONE
  11. FENTANYL. [Concomitant]
     Active Substance: FENTANYL
  12. DEXAMETHASONE. [Concomitant]
     Active Substance: DEXAMETHASONE

REACTIONS (1)
  - Malignant neoplasm progression [Fatal]

NARRATIVE: CASE EVENT DATE: 20170115
